FAERS Safety Report 16814774 (Version 1)
Quarter: 2019Q3

REPORT INFORMATION
  Report Type: Spontaneous
  Country: US (occurrence: US)
  Receive Date: 20190917
  Receipt Date: 20190917
  Transmission Date: 20191005
  Serious: No
  Sender: FDA-Public Use
  Company Number: US-ALLERGAN-1850184US

PATIENT
  Age: 81 Year
  Sex: Male

DRUGS (3)
  1. LINZESS [Suspect]
     Active Substance: LINACLOTIDE
     Indication: ABDOMINAL DISCOMFORT
     Dosage: 72 ?G, UNK
     Route: 065
     Dates: start: 201810
  2. UNSPECIFIED BUNCH OF BLOOD PRESSURE MEDICATIONS [Concomitant]
     Indication: BLOOD PRESSURE MEASUREMENT
  3. UNSPECIFIED BUNCH OF CHOLESTEROL MEDICATIONS [Concomitant]
     Indication: BLOOD CHOLESTEROL

REACTIONS (3)
  - Product dose omission [Unknown]
  - Off label use [Unknown]
  - Therapeutic response unexpected [Unknown]

NARRATIVE: CASE EVENT DATE: 201810
